FAERS Safety Report 4395678-5 (Version None)
Quarter: 2004Q3

REPORT INFORMATION
  Report Type: 
  Country: None (occurrence: None)
  Receive Date: 20040707
  Receipt Date: 20040624
  Transmission Date: 20050211
  Serious: Yes (Hospitalization)
  Sender: FDA-Public Use
  Company Number: 2004043463

PATIENT
  Age: 22 Year
  Sex: Female

DRUGS (4)
  1. ZOLOFT [Suspect]
     Indication: DEPRESSION
     Dosage: (1 IN 1 D), ORAL
     Route: 048
     Dates: start: 19970101
  2. CARBAMAZEPINE [Concomitant]
  3. PHENYTOIN SODIUM [Concomitant]
  4. CLOBAZAM (CLOBAZAM) [Concomitant]

REACTIONS (1)
  - CEREBRAL ATROPHY [None]
